FAERS Safety Report 4453757-8 (Version None)
Quarter: 2004Q3

REPORT INFORMATION
  Report Type: 
  Country: None (occurrence: None)
  Receive Date: 20040902
  Receipt Date: 20040616
  Transmission Date: 20050211
  Serious: No
  Sender: FDA-Public Use
  Company Number: 200418422BWH

PATIENT
  Age: 76 Year
  Sex: Male
  Weight: 65.7716 kg

DRUGS (7)
  1. LEVITRA [Suspect]
     Indication: ERECTILE DYSFUNCTION
     Dosage: 20 MG, ONCE, ORAL
     Route: 048
     Dates: start: 20040603
  2. ZOLOFT [Concomitant]
  3. MYSOLINE [Concomitant]
  4. CARDURA /IRE/ [Concomitant]
  5. COMBIVENT [Concomitant]
  6. ADVAIR DISKUS 100/50 [Concomitant]
  7. NASONEX [Concomitant]

REACTIONS (1)
  - VISION BLURRED [None]
